FAERS Safety Report 4895031-1 (Version None)
Quarter: 2006Q1

REPORT INFORMATION
  Report Type: 
  Country: None (occurrence: None)
  Receive Date: 20060130
  Receipt Date: 20051028
  Transmission Date: 20060701
  Serious: No
  Sender: FDA-Public Use
  Company Number: US-BRISTOL-MYERS SQUIBB COMPANY-13160973

PATIENT
  Age: 39 Year
  Sex: Female
  Weight: 91 kg

DRUGS (3)
  1. GLUCOPHAGE [Suspect]
     Route: 048
  2. AVANDIA [Concomitant]
  3. AMARYL [Concomitant]

REACTIONS (3)
  - FATIGUE [None]
  - MIGRAINE [None]
  - WEIGHT INCREASED [None]
